FAERS Safety Report 25347847 (Version 1)
Quarter: 2025Q2

REPORT INFORMATION
  Report Type: Spontaneous
  Country: US (occurrence: None)
  Receive Date: 20250522
  Receipt Date: 20250522
  Transmission Date: 20250717
  Serious: Yes (Hospitalization)
  Sender: FDA-CTU
  Company Number: None

PATIENT
  Age: 54 Year
  Sex: Female

DRUGS (1)
  1. FINGOLIMOD [Suspect]
     Active Substance: FINGOLIMOD
     Dosage: 0.5MG  QD ORAL
     Route: 048

REACTIONS (2)
  - Cerebral fungal infection [None]
  - Pneumonia fungal [None]

NARRATIVE: CASE EVENT DATE: 20250520
